FAERS Safety Report 4747130-2 (Version None)
Quarter: 2005Q3

REPORT INFORMATION
  Report Type: 
  Country: None (occurrence: None)
  Receive Date: 20050815
  Receipt Date: 20050801
  Transmission Date: 20060218
  Serious: Yes (Hospitalization, Other)
  Sender: FDA-Public Use
  Company Number: 2005110127

PATIENT
  Sex: Male

DRUGS (1)
  1. DETROL [Suspect]
     Indication: ILL-DEFINED DISORDER
     Dates: start: 20050517, end: 20050523

REACTIONS (6)
  - ABDOMINAL DISTENSION [None]
  - CONSTIPATION [None]
  - GASTROINTESTINAL PAIN [None]
  - INTESTINAL OBSTRUCTION [None]
  - MALAISE [None]
  - VOMITING [None]
